FAERS Safety Report 6322255-9 (Version None)
Quarter: 2009Q3

REPORT INFORMATION
  Report Type: 
  Country: None (occurrence: None)
  Receive Date: 20090824
  Receipt Date: 20090129
  Transmission Date: 20100115
  Serious: No
  Sender: FDA-Public Use
  Company Number: US-ABBOTT-09P-163-0500913-00

PATIENT
  Sex: Male

DRUGS (6)
  1. NIASPAN [Suspect]
     Indication: DRUG USE FOR UNKNOWN INDICATION
     Route: 048
     Dates: start: 20090101
  2. NIASPAN [Suspect]
     Dates: start: 20081218, end: 20090101
  3. LEVOXYL [Concomitant]
     Indication: DRUG USE FOR UNKNOWN INDICATION
  4. ASPIRIN [Concomitant]
     Indication: DRUG USE FOR UNKNOWN INDICATION
  5. VIAGRA [Concomitant]
     Indication: DRUG USE FOR UNKNOWN INDICATION
  6. TWO UNKNOWN HYPERTENSION MEDICATIONS [Concomitant]
     Indication: DRUG USE FOR UNKNOWN INDICATION

REACTIONS (3)
  - ERECTILE DYSFUNCTION [None]
  - HYPERHIDROSIS [None]
  - PERIPHERAL COLDNESS [None]
